FAERS Safety Report 8841711 (Version 1)
Quarter: 2012Q4

REPORT INFORMATION
  Report Type: Spontaneous
  Country: US (occurrence: None)
  Receive Date: 20121011
  Receipt Date: 20121011
  Transmission Date: 20130627
  Serious: Yes (Hospitalization)
  Sender: FDA-Public Use
  Company Number: 2012CP000125

PATIENT
  Sex: Female

DRUGS (1)
  1. OFIRMEV [Suspect]
     Indication: PAIN
     Route: 042

REACTIONS (2)
  - Organ failure [None]
  - Toxicity to various agents [None]
